FAERS Safety Report 5363790-X (Version None)
Quarter: 2007Q2

REPORT INFORMATION
  Report Type: 
  Country: None (occurrence: None)
  Receive Date: 20070620
  Receipt Date: 20070613
  Transmission Date: 20071010
  Serious: Yes (Hospitalization)
  Sender: FDA-Public Use
  Company Number: US-MERCK-0705USA01049

PATIENT
  Age: 69 Year
  Sex: Female
  Weight: 70 kg

DRUGS (4)
  1. ZOLINZA [Suspect]
     Indication: MYCOSIS FUNGOIDES
     Route: 048
     Dates: start: 20070202, end: 20070301
  2. ZOLINZA [Suspect]
     Route: 048
     Dates: start: 20070504, end: 20070505
  3. ZOLINZA [Suspect]
     Route: 048
     Dates: start: 20070302, end: 20070420
  4. ZOLINZA [Suspect]
     Route: 048
     Dates: start: 20061222

REACTIONS (13)
  - ACUTE PRERENAL FAILURE [None]
  - ANAEMIA [None]
  - ANOREXIA [None]
  - DEHYDRATION [None]
  - DIZZINESS [None]
  - HEPATITIS A ANTIBODY POSITIVE [None]
  - HEPATITIS B POSITIVE [None]
  - HEPATITIS C POSITIVE [None]
  - MYCOSIS FUNGOIDES [None]
  - SYNCOPE [None]
  - TRANSAMINASES INCREASED [None]
  - TRANSIENT ISCHAEMIC ATTACK [None]
  - WEIGHT DECREASED [None]
